FAERS Safety Report 18924461 (Version 3)
Quarter: 2021Q2

REPORT INFORMATION
  Report Type: Other
  Country: US (occurrence: US)
  Receive Date: 20210223
  Receipt Date: 20210611
  Transmission Date: 20210717
  Serious: Yes (Hospitalization, Other)
  Sender: FDA-Public Use
  Company Number: US-ROCHE-2769776

PATIENT
  Age: 66 Year
  Sex: Female
  Weight: 68.1 kg

DRUGS (5)
  1. OCREVUS [Suspect]
     Active Substance: OCRELIZUMAB
     Route: 042
  2. AMLODIPINE [Concomitant]
     Active Substance: AMLODIPINE BESYLATE
     Indication: HYPERTENSION
     Dosage: STARTED OVER 2 YEARS AGO ;ONGOING: YES
     Route: 048
  3. OCREVUS [Suspect]
     Active Substance: OCRELIZUMAB
     Indication: MULTIPLE SCLEROSIS
     Dosage: (PRESCRIBED AS 300 MG ON DAY 1 AND DAY 15 AND 600 MG ONCE IN 6 MONTHS)
     Route: 042
     Dates: start: 201802
  4. OCREVUS [Suspect]
     Active Substance: OCRELIZUMAB
     Route: 042
     Dates: start: 2018
  5. OMEPRAZOLE. [Concomitant]
     Active Substance: OMEPRAZOLE
     Indication: BLOOD CHOLESTEROL INCREASED
     Dosage: STARTED OVER 2 YEARS AGO ;ONGOING: YES
     Route: 048

REACTIONS (10)
  - Transient ischaemic attack [Recovered/Resolved]
  - Muscle strain [Unknown]
  - Hemiparesis [Not Recovered/Not Resolved]
  - Hypoaesthesia [Unknown]
  - COVID-19 [Recovered/Resolved]
  - Cerebrovascular accident [Recovered/Resolved with Sequelae]
  - Movement disorder [Recovering/Resolving]
  - Gait disturbance [Recovered/Resolved]
  - Off label use [Unknown]
  - Peroneal nerve palsy [Unknown]

NARRATIVE: CASE EVENT DATE: 2019
